FAERS Safety Report 17728346 (Version 1)
Quarter: 2020Q2

REPORT INFORMATION
  Report Type: Report from Study
  Country: BR (occurrence: BR)
  Receive Date: 20200430
  Receipt Date: 20200430
  Transmission Date: 20200714
  Serious: Yes (Other)
  Sender: FDA-Public Use
  Company Number: NVSC2020BR115410

PATIENT
  Sex: Female

DRUGS (2)
  1. RITALINA [Suspect]
     Active Substance: METHYLPHENIDATE HYDROCHLORIDE
     Dosage: UNK
     Route: 065
     Dates: end: 20200423
  2. RITALINA [Suspect]
     Active Substance: METHYLPHENIDATE HYDROCHLORIDE
     Indication: DYSLEXIA
     Route: 065

REACTIONS (4)
  - Cold sweat [Recovered/Resolved]
  - Product use in unapproved indication [Unknown]
  - Discomfort [Unknown]
  - Arrhythmia [Recovered/Resolved]
